FAERS Safety Report 17879500 (Version 1)
Quarter: 2020Q2

REPORT INFORMATION
  Report Type: Spontaneous
  Country: US (occurrence: US)
  Receive Date: 20200610
  Receipt Date: 20200610
  Transmission Date: 20200714
  Serious: No
  Sender: FDA-Public Use
  Company Number: US-LUPIN PHARMACEUTICALS INC.-2020-02639

PATIENT
  Age: 13 Year
  Sex: Female
  Weight: 43 kg

DRUGS (3)
  1. DUONEB [Concomitant]
     Active Substance: ALBUTEROL SULFATE\IPRATROPIUM BROMIDE
     Indication: PNEUMONIA
     Dosage: UNK, BID
  2. HYPERTONIC SODIUM CHLORIDE [Concomitant]
     Indication: PNEUMONIA
     Dosage: UNK
  3. TOBRAMYCIN INHALATION SOLUTION USP, 300 MG/5 ML [Suspect]
     Active Substance: TOBRAMYCIN
     Indication: PNEUMONIA
     Dosage: 300 MILLIGRAM, BID
     Dates: start: 20200515

REACTIONS (4)
  - Product odour abnormal [Unknown]
  - Body temperature abnormal [Unknown]
  - Poor quality product administered [Unknown]
  - Product quality issue [Unknown]

NARRATIVE: CASE EVENT DATE: 20200515
